FAERS Safety Report 20710548 (Version 1)
Quarter: 2022Q2

REPORT INFORMATION
  Report Type: Spontaneous
  Country: US (occurrence: US)
  Receive Date: 20220414
  Receipt Date: 20220414
  Transmission Date: 20220721
  Serious: Yes (Hospitalization)
  Sender: FDA-Public Use
  Company Number: US-GLAXOSMITHKLINE-US2022064564

PATIENT
  Age: 79 Year
  Sex: Female

DRUGS (1)
  1. ANORO ELLIPTA [Suspect]
     Active Substance: UMECLIDINIUM BROMIDE\VILANTEROL TRIFENATATE
     Indication: Chronic obstructive pulmonary disease
     Dosage: 1 PUFF(S), QD (62.5-25 ORAL INH(30S)USE 1 INHALATION BY MOUTH INTO THE LUNGS DAILY)
     Route: 055
     Dates: start: 202108

REACTIONS (1)
  - Vascular operation [Recovering/Resolving]

NARRATIVE: CASE EVENT DATE: 20220404
